FAERS Safety Report 6546655-7 (Version None)
Quarter: 2010Q1

REPORT INFORMATION
  Report Type: 
  Country: None (occurrence: None)
  Receive Date: 20100122
  Receipt Date: 20100114
  Transmission Date: 20100710
  Serious: Yes (Hospitalization)
  Sender: FDA-Public Use
  Company Number: SE-ASTRAZENECA-2010SE01643

PATIENT
  Age: 86 Year
  Sex: Female

DRUGS (7)
  1. FELODIPINE [Suspect]
     Indication: ESSENTIAL HYPERTENSION
     Route: 048
     Dates: end: 20090901
  2. ALENAT [Concomitant]
  3. NITROMEX [Concomitant]
     Route: 060
  4. WARAN [Concomitant]
  5. VI-SIBLIN [Concomitant]
  6. ESTRADIOL [Concomitant]
  7. DRUG NOT SHOWN [Concomitant]

REACTIONS (4)
  - ALOPECIA [None]
  - HYPERHIDROSIS [None]
  - MUSCLE SPASMS [None]
  - PARAESTHESIA [None]
